FAERS Safety Report 5345863-0 (Version None)
Quarter: 2007Q2

REPORT INFORMATION
  Report Type: 
  Country: None (occurrence: None)
  Receive Date: 20070605
  Receipt Date: 20070531
  Transmission Date: 20071010
  Serious: Yes (Hospitalization)
  Sender: FDA-Public Use
  Company Number: US-BAYER-200711422BCC

PATIENT
  Age: 67 Year
  Sex: Male
  Weight: 68 kg

DRUGS (6)
  1. ASPIRIN [Suspect]
     Indication: ISCHAEMIC HEART DISEASE PROPHYLAXIS
     Dosage: TOTAL DAILY DOSE: 325 MG  UNIT DOSE: 325 MG
     Route: 048
     Dates: start: 19980101
  2. TOPROL-XL [Concomitant]
  3. ESTER C [Concomitant]
  4. PLAVIX [Concomitant]
  5. GARLIC PILLS [Concomitant]
  6. GENERIC ZOCOR [Concomitant]

REACTIONS (1)
  - DYSPNOEA [None]
